FAERS Safety Report 14065143 (Version 2)
Quarter: 2017Q4

REPORT INFORMATION
  Report Type: Spontaneous
  Country: CH (occurrence: CH)
  Receive Date: 20171009
  Receipt Date: 20171011
  Transmission Date: 20180321
  Serious: Yes (Hospitalization, Other)
  Sender: FDA-Public Use
  Company Number: CH-PFIZER INC-2017426676

PATIENT
  Age: 78 Year
  Sex: Female
  Weight: 100 kg

DRUGS (24)
  1. METHOTREXATE (METHOTREXATE SODIUM) [Interacting]
     Active Substance: METHOTREXATE SODIUM
     Dosage: 15 MG, WEEKLY (1-0-0-0)
     Route: 058
     Dates: start: 201706, end: 20170821
  2. NEURONTIN [Concomitant]
     Active Substance: GABAPENTIN
     Dosage: 300 MG, 4X/DAY (1-1-1-1)
  3. SPIRICORT [Concomitant]
     Active Substance: PREDNISOLONE
     Dosage: 60 MG, 1X/DAY
     Dates: start: 201612
  4. SURMONTIL [Concomitant]
     Active Substance: TRIMIPRAMINE MALEATE
     Dosage: 12.5 MG, 1X/DAY (0-0-0-1/2)
     Route: 048
  5. IMUREK /00001501/ [Interacting]
     Active Substance: AZATHIOPRINE
     Dosage: UNK UNK, 1X/DAY
     Dates: start: 200608
  6. GLUCOPHAGE [Suspect]
     Active Substance: METFORMIN HYDROCHLORIDE
     Dosage: 500 MG, 2X/DAY (1-^0-1-0)
     Route: 048
     Dates: end: 20170828
  7. MIACALCIC [Concomitant]
     Active Substance: CALCITONIN SALMON
     Dosage: 200 IU, 1X/DAY (1-0-0-0)
  8. PANTOZOL [Concomitant]
     Active Substance: PANTOPRAZOLE SODIUM
     Dosage: 40 MG, 1X/DAY (1-0-0-0)
     Route: 048
     Dates: end: 20170821
  9. IMAZOLE [Concomitant]
     Dosage: UNK, 2X/DAY (UNDER BREAST, 1-0-0-1)
  10. MINALGIN [Interacting]
     Active Substance: METAMIZOLE
     Dosage: 500 MG, 4X/DAY (1-1-1-1)
     Route: 048
     Dates: start: 20170807, end: 20170821
  11. CIPROFLOXACIN. [Interacting]
     Active Substance: CIPROFLOXACIN
     Indication: URINARY TRACT INFECTION BACTERIAL
     Dosage: UNK
     Dates: start: 20170809, end: 20170815
  12. IMUREK /00001501/ [Interacting]
     Active Substance: AZATHIOPRINE
     Dosage: UNK
     Dates: start: 20170808, end: 20170809
  13. COVERSUM N COMBI [Interacting]
     Active Substance: INDAPAMIDE\PERINDOPRIL ARGININE
     Dosage: 2.5 MG, 1X/DAY (1/2-0-0-0)
     Route: 048
     Dates: end: 20170821
  14. ACIDUM FOLICUM STREULI [Concomitant]
     Active Substance: FOLIC ACID
     Dosage: 5 MG, 1X/DAY (1-0-0-0)
     Route: 048
  15. PRAVALOTIN [Suspect]
     Active Substance: PRAVASTATIN SODIUM
     Dosage: 40 MG, 1X/DAY (0-0-1-0)
     Route: 048
     Dates: end: 20170821
  16. SPIRICORT [Concomitant]
     Active Substance: PREDNISOLONE
     Dosage: 20 MG, 1X/DAY
     Dates: start: 201605
  17. PALEXIA [Concomitant]
     Active Substance: TAPENTADOL HYDROCHLORIDE
     Dosage: 150 MG, 2X/DAY (1-0-0-1)
  18. NORVASC [Suspect]
     Active Substance: AMLODIPINE BESYLATE
     Dosage: 5 MG, 1X/DAY (1/2-0-0-0)
     Dates: end: 20170829
  19. CALCIMAGON-D3 [Concomitant]
     Active Substance: CALCIUM\CHOLECALCIFEROL
     Dosage: 2500 MG/800 IU, 1X/DAY (0-1-0-0)
  20. SPIRICORT [Concomitant]
     Active Substance: PREDNISOLONE
     Dosage: 15 MG, 1X/DAY
  21. ASS CARDIO [Interacting]
     Active Substance: ASPIRIN
     Dosage: 100 MG, 1X/DAY (1-0-0-0)
     Dates: end: 20170825
  22. SPIRICORT [Concomitant]
     Active Substance: PREDNISOLONE
     Dosage: 20 MG, 1X/DAY
  23. FRAGMIN [Suspect]
     Active Substance: DALTEPARIN SODIUM
     Dosage: 7500 IU/0.3 ML, 1X/DAY (0-0-1-0)
     Route: 058
     Dates: end: 20170823
  24. IMUREK /00001501/ [Interacting]
     Active Substance: AZATHIOPRINE
     Dosage: 150 MG, 1X/DAY
     Dates: start: 201605, end: 201706

REACTIONS (3)
  - Contraindicated product administered [Recovered/Resolved]
  - Drug interaction [Recovered/Resolved]
  - Pancytopenia [Recovered/Resolved]

NARRATIVE: CASE EVENT DATE: 201706
